FAERS Safety Report 23150546 (Version 1)
Quarter: 2023Q4

REPORT INFORMATION
  Report Type: Spontaneous
  Country: US (occurrence: US)
  Receive Date: 20231106
  Receipt Date: 20231106
  Transmission Date: 20240109
  Serious: No
  Sender: FDA-Public Use
  Company Number: US-MYLANLABS-2023M1115559

PATIENT
  Age: 78 Year
  Sex: Female
  Weight: 79.38 kg

DRUGS (6)
  1. GABAPENTIN [Suspect]
     Active Substance: GABAPENTIN
     Indication: Bursitis
     Dosage: 300 MILLIGRAM, BID
     Route: 065
     Dates: start: 20231020
  2. GABAPENTIN [Suspect]
     Active Substance: GABAPENTIN
     Indication: Sciatica
  3. ALEVE [Concomitant]
     Active Substance: NAPROXEN SODIUM
     Indication: Bursitis
     Dosage: 1 DOSAGE FORM, QD (TAKES 1 ALEVE A DAY)
     Route: 065
  4. ALEVE [Concomitant]
     Active Substance: NAPROXEN SODIUM
     Indication: Sciatica
  5. TYLENOL [Concomitant]
     Active Substance: ACETAMINOPHEN
     Indication: Bursitis
     Dosage: TAKES TYLENOL IN THE DAY AS NEEDED
     Route: 065
  6. TYLENOL [Concomitant]
     Active Substance: ACETAMINOPHEN
     Indication: Sciatica

REACTIONS (1)
  - Off label use [Unknown]

NARRATIVE: CASE EVENT DATE: 20231020
